FAERS Safety Report 25324799 (Version 5)
Quarter: 2025Q3

REPORT INFORMATION
  Report Type: Spontaneous
  Country: EU (occurrence: EU)
  Receive Date: 20250516
  Receipt Date: 20250826
  Transmission Date: 20251020
  Serious: Yes (Other)
  Sender: ABBVIE
  Company Number: EU-PFIZER INC-PV202500055719

PATIENT
  Sex: Male

DRUGS (1)
  1. AVIBACTAM\AZTREONAM [Suspect]
     Active Substance: AVIBACTAM\AZTREONAM
     Indication: Pneumonia
     Route: 065

REACTIONS (3)
  - Off label use [Unknown]
  - Pneumonia klebsiella [Unknown]
  - Drug ineffective [Unknown]
